FAERS Safety Report 24979471 (Version 3)
Quarter: 2025Q2

REPORT INFORMATION
  Report Type: Report from Study
  Country: US (occurrence: US)
  Receive Date: 20250218
  Receipt Date: 20250509
  Transmission Date: 20250716
  Serious: Yes (Death, Hospitalization, Other)
  Sender: ROCHE
  Company Number: US-ROCHE-10000204373

PATIENT

DRUGS (1)
  1. OCRELIZUMAB [Suspect]
     Active Substance: OCRELIZUMAB
     Indication: Multiple sclerosis
     Route: 065

REACTIONS (9)
  - Urinary tract infection [Unknown]
  - COVID-19 [Unknown]
  - Upper respiratory tract infection [Unknown]
  - Sepsis [Fatal]
  - Progressive multifocal leukoencephalopathy [Unknown]
  - Hypogammaglobulinaemia [Unknown]
  - JC polyomavirus test positive [Unknown]
  - Infection [Fatal]
  - Lower respiratory tract infection [Unknown]
